FAERS Safety Report 11717633 (Version 1)
Quarter: 2015Q4

REPORT INFORMATION
  Report Type: Other
  Country: BR (occurrence: BR)
  Receive Date: 20151110
  Receipt Date: 20151110
  Transmission Date: 20160304
  Serious: Yes (Other)
  Sender: FDA-Public Use
  Company Number: BR-HETERO LABS LTD-1043961

PATIENT
  Age: 29 Year
  Sex: Female

DRUGS (4)
  1. ARIPIPRAZOLE. [Suspect]
     Active Substance: ARIPIPRAZOLE
     Indication: PSYCHOTIC DISORDER
  2. DULOXETINE. [Concomitant]
     Active Substance: DULOXETINE
  3. LAMOTRIGINE. [Concomitant]
     Active Substance: LAMOTRIGINE
  4. MIRTAZAPINE. [Concomitant]
     Active Substance: MIRTAZAPINE

REACTIONS (5)
  - Psychotic disorder [Recovered/Resolved]
  - Akathisia [Recovered/Resolved]
  - Psychotic disorder [None]
  - Intentional self-injury [Recovered/Resolved]
  - Anxiety [Recovered/Resolved]
